FAERS Safety Report 23358426 (Version 1)
Quarter: 2024Q1

REPORT INFORMATION
  Report Type: Spontaneous
  Country: SI (occurrence: SI)
  Receive Date: 20240102
  Receipt Date: 20240102
  Transmission Date: 20240410
  Serious: Yes (Other)
  Sender: FDA-Public Use
  Company Number: None

PATIENT
  Age: 71 Year
  Sex: Female
  Weight: 50 kg

DRUGS (4)
  1. PACLITAXEL [Suspect]
     Active Substance: PACLITAXEL
     Indication: Triple negative breast cancer
     Dosage: STRENGHT: 6 MG/ML?DOSE: 125 MG
     Route: 042
     Dates: start: 20231121, end: 20231121
  2. PACLITAXEL [Suspect]
     Active Substance: PACLITAXEL
     Dosage: STRENGHT: 6 MG/ML?DOSE: 125 MG
     Route: 042
     Dates: start: 20231114, end: 20231114
  3. PACLITAXEL [Suspect]
     Active Substance: PACLITAXEL
     Dosage: STRENGHT: 6 MG/ML?DOSE: 125 MG
     Route: 042
     Dates: start: 20231107, end: 20231107
  4. Tulip 10 MG [Concomitant]
     Indication: Hyperlipidaemia
     Dosage: 1X1

REACTIONS (3)
  - Circulatory collapse [Recovering/Resolving]
  - Syncope [Recovering/Resolving]
  - Pancytopenia [Unknown]
